FAERS Safety Report 5006344-7 (Version None)
Quarter: 2006Q2

REPORT INFORMATION
  Report Type: 
  Country: None (occurrence: None)
  Receive Date: 20060516
  Receipt Date: 20060509
  Transmission Date: 20061013
  Serious: Yes (Other)
  Sender: FDA-Public Use
  Company Number: 2006061642

PATIENT
  Age: 80 Year
  Sex: Male
  Weight: 84.8226 kg

DRUGS (1)
  1. LIPITOR [Suspect]
     Indication: CARDIAC DISORDER
     Dosage: 10 MG (10 MG, 1 IN 1 D) ORAL
     Route: 048

REACTIONS (3)
  - BODY HEIGHT DECREASED [None]
  - FOREIGN BODY TRAUMA [None]
  - MYOCARDIAL INFARCTION [None]
